FAERS Safety Report 9248514 (Version 1)
Quarter: 2013Q1

REPORT INFORMATION
  Report Type: Spontaneous
  Country: US (occurrence: None)
  Receive Date: 20130305
  Receipt Date: 20130305
  Transmission Date: 20140127
  Serious: Yes (Other)
  Sender: FDA-Public Use
  Company Number: 163-21880-12091994

PATIENT
  Age: 86 Year
  Sex: Female

DRUGS (9)
  1. REVLIMID [Suspect]
     Indication: PLASMA CELL MYELOMA
     Dosage: 25MG, 21 IN 21 D, PO
     Route: 048
     Dates: start: 20120810
  2. CALCIUM MAGNESIUM ZINC (CALCIUM MAGNESIUM ZINC) [Concomitant]
  3. LEVOTHYROXINE SODIUM) (LEVOTHYROXINE SODIUM) [Concomitant]
  4. ACTONEL (RISEDRONATE SODIUM) [Concomitant]
  5. LIPITOR (ATORVASTATIN) [Concomitant]
  6. NEXIUM [Concomitant]
  7. VITAMIN B-12 (CYANOCOBALAMIN) [Concomitant]
  8. ZOLOFT (SERTRALINE HYDROCHLORIDE) [Concomitant]
  9. CENTRUM SILVER (CENTRUM SILVER) [Concomitant]

REACTIONS (1)
  - Dizziness [None]
